FAERS Safety Report 5735649-7 (Version None)
Quarter: 2008Q2

REPORT INFORMATION
  Report Type: 
  Country: None (occurrence: None)
  Receive Date: 20080512
  Receipt Date: 20080430
  Transmission Date: 20081010
  Serious: Yes (Hospitalization, Other)
  Sender: FDA-Public Use
  Company Number: US-PFIZER INC-2008038616

PATIENT
  Sex: Male
  Weight: 83.9 kg

DRUGS (6)
  1. DILANTIN [Suspect]
     Indication: CONVULSION
     Dosage: DAILY DOSE:450MG
  2. DILANTIN [Suspect]
     Dosage: DAILY DOSE:50MG
     Dates: start: 19980101
  3. SULAR [Concomitant]
     Indication: BLOOD PRESSURE
  4. LIPITOR [Concomitant]
     Indication: BLOOD CHOLESTEROL
  5. LISINOPRIL [Concomitant]
  6. PRAVASTATIN [Concomitant]

REACTIONS (8)
  - DYSARTHRIA [None]
  - GINGIVAL HYPERPLASIA [None]
  - HEADACHE [None]
  - HEARING IMPAIRED [None]
  - HYPOAESTHESIA [None]
  - MOTION SICKNESS [None]
  - MUSCULOSKELETAL STIFFNESS [None]
  - VERTIGO [None]
